FAERS Safety Report 9698562 (Version 2)
Quarter: 2013Q4

REPORT INFORMATION
  Report Type: Spontaneous
  Country: HR (occurrence: HR)
  Receive Date: 20131120
  Receipt Date: 20131125
  Transmission Date: 20140711
  Serious: Yes (Other)
  Sender: FDA-Public Use
  Company Number: HR-PFIZER INC-2013329364

PATIENT
  Age: 67 Year
  Sex: Female
  Weight: 71 kg

DRUGS (9)
  1. LYRICA [Suspect]
     Indication: NEURALGIA
     Dosage: 75 MG, 2X/DAY
     Route: 048
     Dates: start: 201307, end: 201308
  2. NORVASC [Concomitant]
     Indication: CARDIOMYOPATHY
     Dosage: 5 MG, 1X/DAY
     Route: 048
  3. TERTENSIF - SLOW RELEASE [Concomitant]
     Indication: CARDIOMYOPATHY
     Dosage: 1.5 MG, 1X/DAY
     Route: 048
  4. RANITAL [Concomitant]
     Dosage: 150 MG, 1X/DAY
     Route: 048
  5. CONCOR COR [Concomitant]
     Indication: CARDIOMYOPATHY
     Dosage: 2.5 MG, 1X/DAY
     Route: 048
  6. SPIRIVA ^BOEHRINGER INGELHEIM^ [Concomitant]
     Indication: CHRONIC OBSTRUCTIVE PULMONARY DISEASE
     Dosage: 18 UG, 1X/DAY
     Route: 048
  7. SERETIDE DISKUS [Concomitant]
     Indication: CHRONIC OBSTRUCTIVE PULMONARY DISEASE
     Dosage: 500 IU, 2X/DAY
     Route: 048
  8. HELEX [Concomitant]
     Dosage: 05 MG, AS NEEDED
     Route: 048
  9. HELEX [Concomitant]
     Dosage: 0.25 MG, AS NEEDED
     Route: 048

REACTIONS (3)
  - Confusional state [Recovered/Resolved]
  - Disturbance in attention [Recovered/Resolved]
  - Mental impairment [Recovered/Resolved]
